FAERS Safety Report 10025202 (Version 4)
Quarter: 2014Q3

REPORT INFORMATION
  Report Type: Report from Study
  Country: CA (occurrence: CA)
  Receive Date: 20140320
  Receipt Date: 20140902
  Transmission Date: 20150326
  Serious: Yes (Hospitalization, Other)
  Sender: FDA-Public Use
  Company Number: CA-BRISTOL-MYERS SQUIBB COMPANY-19876606

PATIENT
  Age: 56 Year
  Sex: Female

DRUGS (5)
  1. PREDNISONE. [Concomitant]
     Active Substance: PREDNISONE
  2. ORENCIA [Suspect]
     Active Substance: ABATACEPT
     Indication: RHEUMATOID ARTHRITIS
     Dosage: 1DF: 750 UNIT NOS?BATCH# 3F76196?EXP# MAR2016?EXP DT: AG16
     Route: 042
     Dates: start: 20121004
  3. CANDESARTAN [Concomitant]
     Active Substance: CANDESARTAN
  4. NEXIUM [Concomitant]
     Active Substance: ESOMEPRAZOLE MAGNESIUM
  5. RISEDRONATE SODIUM. [Concomitant]
     Active Substance: RISEDRONATE SODIUM

REACTIONS (7)
  - Sleep disorder [Unknown]
  - Vision blurred [Unknown]
  - Eye disorder [Unknown]
  - Sciatica [Unknown]
  - Intestinal perforation [Unknown]
  - Diverticulum [Unknown]
  - Exostosis [Unknown]

NARRATIVE: CASE EVENT DATE: 20140206
